FAERS Safety Report 20391445 (Version 2)
Quarter: 2022Q1

REPORT INFORMATION
  Report Type: Spontaneous
  Country: US (occurrence: US)
  Receive Date: 20220128
  Receipt Date: 20220216
  Transmission Date: 20220424
  Serious: No
  Sender: FDA-Public Use
  Company Number: US-MACLEODS PHARMACEUTICALS US LTD-MAC2022034158

PATIENT

DRUGS (6)
  1. FAMCICLOVIR [Suspect]
     Active Substance: FAMCICLOVIR
     Indication: Infection prophylaxis
     Dosage: 500 MILLIGRAM, BID
     Route: 065
  2. FAMCICLOVIR [Suspect]
     Active Substance: FAMCICLOVIR
     Dosage: 500 MILLIGRAM, BID, 2 DOSAGE FORM, BID, NDC NO. 0033342026071; 1000 MG TWICE A DAY MORNING AND NIGHT
     Route: 065
     Dates: start: 20220111
  3. METFORMIN [Concomitant]
     Active Substance: METFORMIN HYDROCHLORIDE
     Indication: Diabetes mellitus
     Dosage: 1000 MILLIGRAM, BID
     Route: 065
  4. PRAVASTATIN [Concomitant]
     Active Substance: PRAVASTATIN
     Indication: Blood cholesterol abnormal
     Dosage: 40 MILLIGRAM, QD
     Route: 065
  5. ALLOPURINOL [Concomitant]
     Active Substance: ALLOPURINOL
     Indication: Gout
     Dosage: 300 MILLIGRAM, QD
     Route: 065
  6. METOPROLOL [Concomitant]
     Active Substance: METOPROLOL
     Indication: Atrial fibrillation
     Dosage: 150 MILLIGRAM, QD
     Route: 065

REACTIONS (8)
  - Influenza [Recovered/Resolved]
  - Lacrimation increased [Recovered/Resolved]
  - Toothache [Recovered/Resolved]
  - Paraesthesia oral [Recovered/Resolved]
  - Oral pain [Recovered/Resolved]
  - Nasal congestion [Recovered/Resolved]
  - Headache [Recovered/Resolved]
  - Drug ineffective [Unknown]
